FAERS Safety Report 14794607 (Version 1)
Quarter: 2018Q2

REPORT INFORMATION
  Report Type: Spontaneous
  Country: TW (occurrence: TW)
  Receive Date: 20180423
  Receipt Date: 20180423
  Transmission Date: 20180711
  Serious: Yes (Other)
  Sender: FDA-Public Use
  Company Number: TW-ELI_LILLY_AND_COMPANY-TW201804010089

PATIENT
  Age: 50 Year
  Sex: Male
  Weight: 54 kg

DRUGS (16)
  1. ERBITUX [Suspect]
     Active Substance: CETUXIMAB
     Indication: LIP AND/OR ORAL CAVITY CANCER
     Dosage: 400 TO 600 MG
     Route: 041
     Dates: start: 20170109, end: 20170313
  2. CISPLATIN. [Concomitant]
     Active Substance: CISPLATIN
     Dosage: 50 MG, UNK
     Route: 041
     Dates: start: 20170509
  3. 5-FU                               /00098801/ [Concomitant]
     Active Substance: FLUOROURACIL
     Dosage: 800 MG, UNK
     Dates: start: 20170509
  4. UFUR [Concomitant]
     Indication: LIP AND/OR ORAL CAVITY CANCER
     Dosage: UNK
     Route: 048
     Dates: start: 20160512, end: 20160630
  5. CISPLATIN. [Concomitant]
     Active Substance: CISPLATIN
     Dosage: 50 MG, UNK
     Route: 041
     Dates: start: 20161220, end: 20170102
  6. 5-FU                               /00098801/ [Concomitant]
     Active Substance: FLUOROURACIL
     Dosage: 800 TO 1000 MG
     Dates: start: 20170515, end: 20170926
  7. NIVOLUMAB [Concomitant]
     Active Substance: NIVOLUMAB
     Indication: LIP AND/OR ORAL CAVITY CANCER
     Dosage: 120 MG, UNK
     Route: 041
     Dates: start: 20171112
  8. UFUR [Concomitant]
     Dosage: UNK
     Route: 048
     Dates: start: 20170327, end: 20170507
  9. DOCETAXEL. [Concomitant]
     Active Substance: DOCETAXEL
     Indication: LIP AND/OR ORAL CAVITY CANCER
     Dosage: 60 MG, UNKNOWN
     Dates: start: 20171112
  10. ERBITUX [Suspect]
     Active Substance: CETUXIMAB
     Dosage: 400 TO 600 MG
     Route: 041
     Dates: start: 20170515, end: 20170926
  11. ERBITUX [Suspect]
     Active Substance: CETUXIMAB
     Dosage: 300 MG, UNK
     Route: 041
     Dates: start: 20171112
  12. 5-FU                               /00098801/ [Concomitant]
     Active Substance: FLUOROURACIL
     Indication: LIP AND/OR ORAL CAVITY CANCER
     Dosage: 800 MG, UNK
     Dates: start: 20161220, end: 20170102
  13. CISPLATIN. [Concomitant]
     Active Substance: CISPLATIN
     Dosage: 50 MG, UNK
     Route: 041
     Dates: start: 20170109, end: 20170313
  14. CISPLATIN. [Concomitant]
     Active Substance: CISPLATIN
     Dosage: 50 TO 80 MG
     Route: 041
     Dates: start: 20170515, end: 20170926
  15. CISPLATIN. [Concomitant]
     Active Substance: CISPLATIN
     Indication: LIP AND/OR ORAL CAVITY CANCER
     Dosage: 81.5 TO 83 MG
     Route: 041
     Dates: start: 20160316, end: 20160406
  16. 5-FU                               /00098801/ [Concomitant]
     Active Substance: FLUOROURACIL
     Dosage: 800 MG, UNK
     Dates: start: 20170109, end: 20170313

REACTIONS (5)
  - Thrombocytopenia [Unknown]
  - Leukopenia [Unknown]
  - Stomatitis [Not Recovered/Not Resolved]
  - Xeroderma [Unknown]
  - Anaemia [Unknown]

NARRATIVE: CASE EVENT DATE: 2017
